FAERS Safety Report 9452715 (Version 1)
Quarter: 2013Q3

REPORT INFORMATION
  Report Type: Report from Study
  Country: US (occurrence: US)
  Receive Date: 20130812
  Receipt Date: 20130812
  Transmission Date: 20140515
  Serious: Yes (Hospitalization, Other)
  Sender: FDA-Public Use
  Company Number: PHHY2013US084641

PATIENT
  Age: 29 Year
  Sex: Female
  Weight: 128.35 kg

DRUGS (9)
  1. GILENYA [Suspect]
     Indication: MULTIPLE SCLEROSIS
     Dosage: 0.5 MG, QD
     Route: 048
     Dates: start: 20120727, end: 201212
  2. CYMBALTA [Concomitant]
     Dosage: 60 MG, QD
  3. QUIT [Concomitant]
     Dosage: UNK UKN, IRD
  4. AZTREONAM [Concomitant]
     Dosage: 1 G, BID
  5. TRAZODONE [Concomitant]
     Dosage: 75 MG, EVERY BEDTIME
  6. HYDROXYZINE [Concomitant]
     Dosage: 50 MG, QID
  7. CARISOPRODOL [Concomitant]
     Dosage: 350 MG, BID
  8. PROVERA [Concomitant]
     Dosage: UNK UKN, ONCE EVERY 3 MONTHS
  9. CHANTIX [Concomitant]
     Dosage: UNK UKN, QD

REACTIONS (7)
  - Escherichia sepsis [Unknown]
  - Pyelonephritis [Not Recovered/Not Resolved]
  - Abdominal pain [Not Recovered/Not Resolved]
  - Urinary tract infection [Unknown]
  - Hepatic steatosis [Not Recovered/Not Resolved]
  - Hepatic enzyme increased [Not Recovered/Not Resolved]
  - Asthenia [Not Recovered/Not Resolved]
